FAERS Safety Report 6916933-8 (Version None)
Quarter: 2010Q3

REPORT INFORMATION
  Report Type: 
  Country: None (occurrence: None)
  Receive Date: 20100809
  Receipt Date: 20100809
  Transmission Date: 20110219
  Serious: Yes (Other)
  Sender: FDA-Public Use
  Company Number: None

PATIENT
  Age: 52 Year
  Sex: Male
  Weight: 86.1834 kg

DRUGS (1)
  1. NAPROXEN [Suspect]
     Indication: EPICONDYLITIS
     Dosage: 1 2 PO
     Route: 048
     Dates: start: 20100805, end: 20100806

REACTIONS (3)
  - AGGRESSION [None]
  - MOOD SWINGS [None]
  - RECTAL HAEMORRHAGE [None]
